FAERS Safety Report 8523692-4 (Version None)
Quarter: 2012Q3

REPORT INFORMATION
  Report Type: 
  Country: None (occurrence: None)
  Receive Date: 20120720
  Receipt Date: 20120711
  Transmission Date: 20120928
  Serious: Yes (Disabling)
  Sender: FDA-Public Use
  Company Number: US-JNJFOC-20120610452

PATIENT
  Sex: Female
  Weight: 58.06 kg

DRUGS (7)
  1. REMICADE [Suspect]
     Route: 042
     Dates: start: 20120412
  2. BENADRYL [Concomitant]
     Indication: PREMEDICATION
     Route: 065
  3. PREDNISONE [Concomitant]
     Indication: COLITIS ULCERATIVE
     Dosage: 4 TABLETS; INTERMITTENT
     Route: 065
  4. REMICADE [Suspect]
     Indication: COLITIS ULCERATIVE
     Dosage: AT WEEK 0, 2 AND 6
     Route: 042
     Dates: start: 20120510
  5. TYLENOL [Concomitant]
     Indication: PREMEDICATION
     Route: 065
  6. REMICADE [Suspect]
     Route: 042
     Dates: start: 20120329
  7. ASACOL [Concomitant]
     Indication: COLITIS ULCERATIVE
     Dosage: 4 CAPSULES
     Route: 065
     Dates: start: 20070101

REACTIONS (8)
  - MYALGIA [None]
  - MOOD SWINGS [None]
  - ARTHRALGIA [None]
  - ANXIETY [None]
  - TREMOR [None]
  - STRESS [None]
  - INFUSION RELATED REACTION [None]
  - AGITATION [None]
